FAERS Safety Report 12894028 (Version 1)
Quarter: 2016Q4

REPORT INFORMATION
  Report Type: Spontaneous
  Country: US (occurrence: US)
  Receive Date: 20161028
  Receipt Date: 20161028
  Transmission Date: 20170207
  Serious: No
  Sender: FDA-Public Use
  Company Number: US-PFIZER INC-2016496059

PATIENT
  Age: 76 Year
  Sex: Female
  Weight: 73 kg

DRUGS (7)
  1. LOSARTAN. [Concomitant]
     Active Substance: LOSARTAN
     Indication: HYPERTENSION
     Dosage: 25 MG, 1X/DAY
     Dates: start: 2008
  2. FLONASE /00908302/ [Concomitant]
     Active Substance: MOMETASONE FUROATE
     Indication: HYPERSENSITIVITY
     Dosage: 2 DF IN EACH NOSTRIL, 2X/DAY AS NEEDED
  3. FLU VACCINE [Concomitant]
     Active Substance: INFLUENZA VIRUS VACCINE
     Indication: IMMUNISATION
     Dosage: UNK
     Dates: start: 201609, end: 201609
  4. ATORVASTATIN CALCIUM. [Suspect]
     Active Substance: ATORVASTATIN CALCIUM
     Indication: BLOOD CHOLESTEROL INCREASED
     Dosage: 40 MG, 1X/DAY
     Route: 048
     Dates: start: 2008, end: 20161013
  5. PREVNAR 13 [Suspect]
     Active Substance: PNEUMOCOCCAL 13-VALENT CONJUGATE VACCINE
     Indication: IMMUNISATION
     Dosage: SINGLE DOSE
     Dates: start: 20161005, end: 20161005
  6. OMEPRAZOLE. [Concomitant]
     Active Substance: OMEPRAZOLE
     Indication: BARRETT^S OESOPHAGUS
     Dosage: 20 MG, 1X/DAY
     Dates: start: 2001
  7. PREMARIN [Concomitant]
     Active Substance: ESTROGENS, CONJUGATED
     Indication: VULVOVAGINAL PRURITUS
     Dosage: 0.625 MG, APPLIED ABOUT TWICE A MONTH

REACTIONS (16)
  - Headache [Recovered/Resolved]
  - Musculoskeletal pain [Unknown]
  - Arthralgia [Recovering/Resolving]
  - Vaccination site warmth [Recovered/Resolved]
  - Pain in extremity [Recovering/Resolving]
  - Costochondritis [Unknown]
  - Abdominal pain upper [Recovered/Resolved]
  - Pyrexia [Recovered/Resolved]
  - Nasopharyngitis [Recovering/Resolving]
  - Myalgia [Recovering/Resolving]
  - Weight decreased [Unknown]
  - Head discomfort [Unknown]
  - Abdominal distension [Recovered/Resolved]
  - Decreased appetite [Recovering/Resolving]
  - Vaccination site erythema [Recovered/Resolved]
  - Cough [Recovering/Resolving]

NARRATIVE: CASE EVENT DATE: 201610
